FAERS Safety Report 16346334 (Version 10)
Quarter: 2020Q4

REPORT INFORMATION
  Report Type: Spontaneous
  Country: US (occurrence: US)
  Receive Date: 20190523
  Receipt Date: 20201218
  Transmission Date: 20210113
  Serious: Yes (Hospitalization, Other)
  Sender: FDA-Public Use
  Company Number: US-PFIZER INC-2019182862

PATIENT
  Age: 68 Year
  Sex: Female

DRUGS (6)
  1. DILANTIN [Suspect]
     Active Substance: PHENYTOIN
     Dosage: 4 DF, DAILY [2 IN THE MORNING, AND 2 AT THE NIGHT]
  2. DILANTIN [Suspect]
     Active Substance: PHENYTOIN
     Indication: SEIZURE
     Dosage: 500 MG, DAILY (100 MG CAPSULES, TWO IN THE MORNING, ONE AT LUNCH TIME AND TWO IN THE EVENING)
     Dates: start: 1985
  3. DILANTIN [Suspect]
     Active Substance: PHENYTOIN
     Dosage: 200 MG, ALTERNATE DAY (TID ^THREE TIMES A DAY^ EVERY OTHER DAY, THEN OTHER DAY 200-100-200)
     Route: 048
  4. DILANTIN [Suspect]
     Active Substance: PHENYTOIN
     Indication: GLIOBLASTOMA
     Dosage: TAKE 5 PILLS (500 MG) ONE DAY AND 6 PILLS (600 MG) THE NEXT, ALTERNATING DOSES
  5. KEPPRA [Concomitant]
     Active Substance: LEVETIRACETAM
     Indication: EPILEPSY
     Dosage: UNK
  6. DILANTIN [Suspect]
     Active Substance: PHENYTOIN
     Indication: EPILEPSY
     Dosage: UNK, DAILY(5-100MG CAPSULES DAILY WITH FOOD:2 AT 8:30AM,1 AFTER LUNCH,2 AT 8:30PM)
     Dates: start: 1985

REACTIONS (8)
  - Endometrial cancer [Unknown]
  - Fall [Unknown]
  - Thyroid cancer [Unknown]
  - Arthralgia [Unknown]
  - Cerebrovascular accident [Unknown]
  - Sleep apnoea syndrome [Unknown]
  - Therapeutic product effect incomplete [Unknown]
  - Poor quality sleep [Unknown]

NARRATIVE: CASE EVENT DATE: 2018
